FAERS Safety Report 5197749-2 (Version None)
Quarter: 2006Q4

REPORT INFORMATION
  Report Type: 
  Country: None (occurrence: None)
  Receive Date: 20061228
  Receipt Date: 20061213
  Transmission Date: 20070319
  Serious: Yes (Hospitalization)
  Sender: FDA-Public Use
  Company Number: OMPQ-NO-0612S-1584

PATIENT
  Age: 59 Year
  Sex: Male
  Weight: 61 kg

DRUGS (1)
  1. OMNIPAQUE 140 [Suspect]
     Indication: AORTIC ANEURYSM
     Dosage: 100 ML, SINGLE DOSE, I.A.
     Route: 013
     Dates: start: 20061113, end: 20061113

REACTIONS (1)
  - PANCREATITIS ACUTE [None]
